FAERS Safety Report 10678149 (Version 1)
Quarter: 2014Q4

REPORT INFORMATION
  Report Type: Spontaneous
  Country: US (occurrence: None)
  Receive Date: 20141223
  Receipt Date: 20141223
  Transmission Date: 20150529
  Serious: Yes (Life-Threatening)
  Sender: FDA-Public Use
  Company Number: USW201411-000268

PATIENT
  Sex: Male

DRUGS (1)
  1. APOKYN [Suspect]
     Active Substance: APOMORPHINE HYDROCHLORIDE
     Indication: PARKINSON^S DISEASE
     Dosage: 0.3 UNITS (UNTIS UNSPECIFIED) ONCE SUBCUTAEOUS
     Route: 058

REACTIONS (7)
  - Staring [None]
  - Nausea [None]
  - Musculoskeletal stiffness [None]
  - Snoring [None]
  - Loss of consciousness [None]
  - Abdominal distension [None]
  - Hyperventilation [None]

NARRATIVE: CASE EVENT DATE: 20141027
